FAERS Safety Report 5710651-X (Version None)
Quarter: 2008Q2

REPORT INFORMATION
  Report Type: 
  Country: None (occurrence: None)
  Receive Date: 20080415
  Receipt Date: 20080401
  Transmission Date: 20081010
  Serious: Yes (Death)
  Sender: FDA-Public Use
  Company Number: 2008026970

PATIENT
  Age: 74 Year
  Sex: Female

DRUGS (8)
  1. FRAGMIN [Suspect]
     Indication: THROMBOSIS PROPHYLAXIS
     Dosage: 2500 I.U. (2500 I.U., 1 IN 24 HR), SUBCUTANEOUS
     Route: 058
     Dates: start: 20080213, end: 20080214
  2. HEPARIN SODIUM [Concomitant]
  3. ARIXTRA [Concomitant]
  4. MICARDIS [Concomitant]
  5. URSO 250 [Concomitant]
  6. CEFOTIAM HYDROCHLORIDE [Concomitant]
  7. FLOMOX (CEFCAPENE PIVOXIL HYDROCHLORIDE) [Concomitant]
  8. DRUG, UNSPECIFIED (DRUG, UNSPECIFIED) [Concomitant]

REACTIONS (2)
  - CEREBRAL HAEMORRHAGE [None]
  - HEPARIN-INDUCED THROMBOCYTOPENIA [None]
